FAERS Safety Report 8888964 (Version 2)
Quarter: 2013Q3

REPORT INFORMATION
  Report Type: Report from Study
  Country: MX (occurrence: MX)
  Receive Date: 20121106
  Receipt Date: 20130812
  Transmission Date: 20140515
  Serious: Yes (Other)
  Sender: FDA-Public Use
  Company Number: PHHY2011MX100383

PATIENT
  Age: 80 Year
  Sex: Female

DRUGS (3)
  1. ACLASTA [Suspect]
     Dosage: 5 MG / 100 ML
     Route: 042
     Dates: start: 201011
  2. ELANTAN [Concomitant]
     Indication: BLOOD PRESSURE
     Dosage: 1 DF, DAILY
     Dates: start: 2006
  3. SOMAZINE [Concomitant]
     Indication: CEREBROVASCULAR DISORDER
     Dosage: 1 DF
     Dates: start: 200811

REACTIONS (5)
  - Memory impairment [Not Recovered/Not Resolved]
  - Arthropathy [Not Recovered/Not Resolved]
  - Head discomfort [Not Recovered/Not Resolved]
  - Blood calcium decreased [Not Recovered/Not Resolved]
  - Drug ineffective [Not Recovered/Not Resolved]
